FAERS Safety Report 16207547 (Version 1)
Quarter: 2019Q2

REPORT INFORMATION
  Report Type: Spontaneous
  Country: US (occurrence: US)
  Receive Date: 20190417
  Receipt Date: 20190417
  Transmission Date: 20190711
  Serious: No
  Sender: FDA-Public Use
  Company Number: US-ASTRAZENECA-2019SE56610

PATIENT
  Age: 38 Year
  Sex: Male
  Weight: 64.9 kg

DRUGS (4)
  1. LISINOPRIL/ HYDROCHLOROTHIAZIDE [Suspect]
     Active Substance: HYDROCHLOROTHIAZIDE\LISINOPRIL
     Indication: HYPERTENSION
     Dosage: DAILY
     Route: 048
  2. OXYCODONE [Concomitant]
     Active Substance: OXYCODONE
     Indication: BACK PAIN
     Route: 048
     Dates: start: 2000
  3. MOVANTIK [Suspect]
     Active Substance: NALOXEGOL OXALATE
     Indication: CONSTIPATION
     Route: 048
     Dates: start: 2014, end: 20190405
  4. DOCUSATE [Concomitant]
     Active Substance: DOCUSATE
     Indication: DIARRHOEA
     Route: 048
     Dates: start: 2016

REACTIONS (5)
  - Lumbar vertebral fracture [Unknown]
  - Nerve injury [Unknown]
  - Intentional product misuse [Unknown]
  - Disability [Unknown]
  - Abdominal pain upper [Recovering/Resolving]

NARRATIVE: CASE EVENT DATE: 1999
